FAERS Safety Report 18393845 (Version 1)
Quarter: 2020Q4

REPORT INFORMATION
  Report Type: Spontaneous
  Country: US (occurrence: US)
  Receive Date: 20201016
  Receipt Date: 20201016
  Transmission Date: 20210114
  Serious: Yes (Death, Other)
  Sender: FDA-Public Use
  Company Number: NVSC2020US278989

PATIENT
  Sex: Male

DRUGS (1)
  1. TASIGNA [Suspect]
     Active Substance: NILOTINIB
     Indication: CHRONIC MYELOID LEUKAEMIA
     Dosage: UNK
     Route: 065
     Dates: start: 201404, end: 201608

REACTIONS (9)
  - Cardiac failure [Unknown]
  - Myocardial infarction [Unknown]
  - Injury [Unknown]
  - Anhedonia [Unknown]
  - Deformity [Unknown]
  - Emotional distress [Unknown]
  - Death [Fatal]
  - Anxiety [Unknown]
  - Pain [Unknown]

NARRATIVE: CASE EVENT DATE: 20181012
